FAERS Safety Report 10528860 (Version 2)
Quarter: 2014Q4

REPORT INFORMATION
  Report Type: Spontaneous
  Country: IT (occurrence: IT)
  Receive Date: 20141020
  Receipt Date: 20141031
  Transmission Date: 20150528
  Serious: Yes (Hospitalization)
  Sender: FDA-Public Use
  Company Number: PHHY2014IT133663

PATIENT
  Age: 45 Year
  Sex: Female

DRUGS (1)
  1. QUETIAPINE [Suspect]
     Active Substance: QUETIAPINE
     Indication: NEUROSIS
     Dosage: 5000 MG, ONCE/SINGLE
     Route: 048
     Dates: start: 20141004, end: 20141004

REACTIONS (2)
  - Coma [Not Recovered/Not Resolved]
  - Drug abuse [Not Recovered/Not Resolved]

NARRATIVE: CASE EVENT DATE: 20141004
